FAERS Safety Report 15277028 (Version 2)
Quarter: 2018Q3

REPORT INFORMATION
  Report Type: Spontaneous
  Country: US (occurrence: US)
  Receive Date: 20180814
  Receipt Date: 20180904
  Transmission Date: 20181010
  Serious: Yes (Other)
  Sender: FDA-Public Use
  Company Number: US-DSJP-DSU-2018-135655

PATIENT

DRUGS (1)
  1. WELCHOL [Suspect]
     Active Substance: COLESEVELAM HYDROCHLORIDE
     Indication: PRODUCT USED FOR UNKNOWN INDICATION
     Dosage: 625 MG, QD
     Route: 065

REACTIONS (9)
  - Neuroma [None]
  - Hernia repair [Unknown]
  - Arthralgia [Unknown]
  - Atrial septal defect [Unknown]
  - Type V hyperlipidaemia [Unknown]
  - Off label use [Unknown]
  - Drug administration error [Unknown]
  - Osteoporosis [Unknown]
  - Rotator cuff repair [Unknown]

NARRATIVE: CASE EVENT DATE: 20110928
